FAERS Safety Report 18371328 (Version 2)
Quarter: 2021Q4

REPORT INFORMATION
  Report Type: Spontaneous
  Country: US (occurrence: US)
  Receive Date: 20201012
  Receipt Date: 20211013
  Transmission Date: 20220304
  Serious: No
  Sender: FDA-Public Use
  Company Number: US-HIKMA PHARMACEUTICALS USA INC.-US-H14001-20-01881

PATIENT
  Age: 78 Year
  Sex: Female

DRUGS (1)
  1. INFUMORPH [Suspect]
     Active Substance: MORPHINE SULFATE
     Indication: Spinal pain
     Route: 037

REACTIONS (2)
  - Skin lesion [Recovered/Resolved]
  - Skin erosion [Recovered/Resolved]

NARRATIVE: CASE EVENT DATE: 20200130
